FAERS Safety Report 8821631 (Version 1)
Quarter: 2012Q4

REPORT INFORMATION
  Report Type: 
  Country: JP (occurrence: JP)
  Receive Date: 20121002
  Receipt Date: 20121002
  Transmission Date: 20130627
  Serious: Yes (Death, Other)
  Sender: FDA-Public Use
  Company Number: JP-ASTELLAS-2012JP004451

PATIENT
  Age: 10 Year
  Sex: Female
  Weight: 13.9 kg

DRUGS (7)
  1. PROGRAF [Suspect]
     Indication: IMMUNOSUPPRESSANT DRUG THERAPY
     Route: 042
  2. PROGRAF [Suspect]
     Indication: IMMUNOSUPPRESSANT DRUG THERAPY
     Route: 048
  3. METHYLPREDNISOLONE [Concomitant]
     Indication: IMMUNOSUPPRESSANT DRUG THERAPY
     Dosage: 10 mg/kg, Unknown/D
     Route: 065
  4. METHYLPREDNISOLONE [Concomitant]
     Route: 065
  5. METHYLPREDNISOLONE [Concomitant]
     Dosage: 20 mg/kg, Unknown/D
     Route: 065
  6. METHYLPREDNISOLONE [Concomitant]
     Dosage: 2 mg/kg, Unknown/D
     Route: 065
  7. SIMULECT [Concomitant]
     Route: 065

REACTIONS (7)
  - Drug ineffective [Unknown]
  - Transplant rejection [Unknown]
  - Transplant rejection [Unknown]
  - Encephalitis fungal [Fatal]
  - Encephalitis herpes [Fatal]
  - Device related infection [Unknown]
  - Aspergillosis [Unknown]
